FAERS Safety Report 9807667 (Version 1)
Quarter: 2014Q1

REPORT INFORMATION
  Report Type: Spontaneous
  Country: US (occurrence: US)
  Receive Date: 20140110
  Receipt Date: 20140110
  Transmission Date: 20141002
  Serious: Yes (Hospitalization)
  Sender: FDA-Public Use
  Company Number: US-SHIRE-ALL1-2014-00055

PATIENT
  Age: 15 Year
  Sex: Male
  Weight: 81.63 kg

DRUGS (2)
  1. VYVANSE [Suspect]
     Indication: ATTENTION DEFICIT/HYPERACTIVITY DISORDER
     Dosage: 70 MG, 1X/DAY:QD
     Route: 048
     Dates: start: 201201, end: 201311
  2. VYVANSE [Suspect]
     Dosage: 80 MG (TWO 40 MG), 1X/DAY:QD
     Route: 048
     Dates: start: 201311

REACTIONS (2)
  - Nephrolithiasis [Recovered/Resolved]
  - Prescribed overdose [Not Recovered/Not Resolved]
